FAERS Safety Report 7840007 (Version 3)
Quarter: 2013Q4

REPORT INFORMATION
  Report Type: Spontaneous
  Country: US (occurrence: US)
  Receive Date: 20110303
  Receipt Date: 20131119
  Transmission Date: 20140711
  Serious: Yes (Hospitalization)
  Sender: FDA-Public Use
  Company Number: US-BAYER-201038104NA

PATIENT
  Age: 16 Year
  Sex: Female
  Weight: 118 kg

DRUGS (16)
  1. YAZ [Suspect]
     Indication: ACNE
     Dosage: UNK UNK, QD
     Route: 048
     Dates: start: 20080708, end: 2010
  2. YAZ [Suspect]
     Indication: MENORRHAGIA
  3. YASMIN [Suspect]
     Indication: ACNE
     Dosage: 3 DF, QD
     Route: 048
     Dates: start: 20080708, end: 2010
  4. YASMIN [Suspect]
     Indication: MENORRHAGIA
     Dosage: 2 DF, UNK
     Route: 048
     Dates: start: 20080708, end: 2010
  5. YASMIN [Suspect]
     Indication: ACNE
     Dosage: 1 DF, QD
     Dates: start: 20080708, end: 2010
  6. OCELLA [Suspect]
     Indication: ACNE
     Dosage: UNK UNK, QD
     Route: 048
     Dates: start: 20080708, end: 2010
  7. OCELLA [Suspect]
     Indication: MENORRHAGIA
  8. ZOFRAN [Concomitant]
     Indication: NAUSEA
     Dosage: 8 MG, UNK
     Route: 048
     Dates: start: 20080708
  9. MULTIVITAMINS [Concomitant]
     Dosage: UNK
  10. AMOXIL [Concomitant]
     Indication: EAR INFECTION
     Dosage: 50 MG, BID
     Dates: start: 2008
  11. AMOXIL [Concomitant]
     Indication: PHARYNGITIS
  12. TYLENOL #3 [Concomitant]
     Indication: PHARYNGITIS
     Dosage: UNK UNK, PRN
     Dates: start: 2008
  13. TYLENOL #3 [Concomitant]
     Indication: EAR INFECTION
  14. MOTRIN [Concomitant]
     Indication: EAR INFECTION
     Dosage: UNK UNK, PRN
  15. MOTRIN [Concomitant]
     Indication: PHARYNGITIS
  16. AUGMENTIN [Concomitant]
     Indication: ACUTE SINUSITIS
     Dosage: 875 MG (1 TABLET), PRN
     Route: 048
     Dates: start: 20081021

REACTIONS (8)
  - Cholelithiasis [None]
  - Cholecystitis chronic [None]
  - Abdominal pain [None]
  - Nausea [None]
  - Jaundice [None]
  - Alanine aminotransferase increased [None]
  - Injury [None]
  - Off label use [None]
